FAERS Safety Report 6969016-5 (Version None)
Quarter: 2010Q3

REPORT INFORMATION
  Report Type: 
  Country: None (occurrence: None)
  Receive Date: 20100903
  Receipt Date: 20100903
  Transmission Date: 20110219
  Serious: Yes (Death)
  Sender: FDA-Public Use
  Company Number: None

PATIENT
  Age: 82 Year
  Sex: Female

DRUGS (10)
  1. REVLIMID [Suspect]
     Indication: MYELODYSPLASTIC SYNDROME
     Dosage: 5MG EVERY OTHER DAY ORALLY
     Route: 048
     Dates: start: 20090301, end: 20090901
  2. CARBIDOPA AND LEVODOPA [Concomitant]
  3. COLACE [Concomitant]
  4. M.V.I. [Concomitant]
  5. LACTULOSE [Concomitant]
  6. POTASSIUM [Concomitant]
  7. LEVOTHROID [Concomitant]
  8. FUROSEMIDE [Concomitant]
  9. HYDRALAZINE [Concomitant]
  10. DILTIAZEM [Concomitant]

REACTIONS (1)
  - NO ADVERSE EVENT [None]
